FAERS Safety Report 16936832 (Version 1)
Quarter: 2019Q4

REPORT INFORMATION
  Report Type: Spontaneous
  Country: FR (occurrence: FR)
  Receive Date: 20191018
  Receipt Date: 20191018
  Transmission Date: 20200122
  Serious: Yes (Other)
  Sender: FDA-Public Use
  Company Number: NVSC2019FR003299

PATIENT
  Age: 54 Year
  Sex: Female

DRUGS (2)
  1. CERITINIB [Suspect]
     Active Substance: CERITINIB
     Indication: LUNG ADENOCARCINOMA
     Dosage: 750 MG, QD
     Route: 065
     Dates: start: 201607
  2. CERITINIB [Suspect]
     Active Substance: CERITINIB
     Dosage: 600 MG
     Route: 065

REACTIONS (5)
  - Therapy partial responder [Unknown]
  - Malignant neoplasm progression [Recovering/Resolving]
  - Lung adenocarcinoma [Recovering/Resolving]
  - Somnolence [Recovering/Resolving]
  - Cell death [Recovering/Resolving]

NARRATIVE: CASE EVENT DATE: 201703
